FAERS Safety Report 19002765 (Version 1)
Quarter: 2021Q1

REPORT INFORMATION
  Report Type: Spontaneous
  Country: IT (occurrence: IT)
  Receive Date: 20210312
  Receipt Date: 20210312
  Transmission Date: 20210420
  Serious: Yes (Hospitalization, Other)
  Sender: FDA-Public Use
  Company Number: IT-PFIZER INC-2021254753

PATIENT
  Age: 56 Year
  Sex: Male

DRUGS (8)
  1. XANAX [Suspect]
     Active Substance: ALPRAZOLAM
     Indication: PSYCHOTIC DISORDER
     Dosage: 60 DF, 1X/DAY
     Route: 048
     Dates: start: 20200226, end: 20210226
  2. SERENASE [LORAZEPAM] [Suspect]
     Active Substance: LORAZEPAM
     Indication: PSYCHOTIC DISORDER
     Dosage: 60 DF, 1X/DAY
     Route: 048
     Dates: start: 20200226, end: 20210226
  3. LARGACTIL LEIRAS [CHLORPROMAZINE HYDROCHLORIDE] [Suspect]
     Active Substance: CHLORPROMAZINE HYDROCHLORIDE
     Indication: PSYCHOTIC DISORDER
     Dosage: 0.5 DF, 1X/DAY
     Route: 048
     Dates: start: 20200226, end: 20210226
  4. TORVAST [Concomitant]
     Active Substance: ATORVASTATIN
     Dosage: UNK
  5. TRIATEC [RAMIPRIL] [Concomitant]
     Active Substance: RAMIPRIL
     Dosage: UNK
  6. ADALAT CRONO [Concomitant]
     Active Substance: NIFEDIPINE
     Dosage: UNK
  7. AKINETON [Suspect]
     Active Substance: BIPERIDEN HYDROCHLORIDE
     Indication: PSYCHOTIC DISORDER
     Dosage: 4 MG, 1X/DAY
     Route: 048
     Dates: start: 20200226, end: 20210226
  8. CARVEDILOLO ACCORD [Concomitant]
     Dosage: UNK

REACTIONS (8)
  - Pyrexia [Recovering/Resolving]
  - Myoglobin blood increased [Recovering/Resolving]
  - Aspartate aminotransferase increased [Recovering/Resolving]
  - Confusional state [Recovering/Resolving]
  - Neuroleptic malignant syndrome [Recovering/Resolving]
  - Off label use [Unknown]
  - Blood creatine phosphokinase increased [Recovering/Resolving]
  - Psychomotor hyperactivity [Recovering/Resolving]

NARRATIVE: CASE EVENT DATE: 20200226
